FAERS Safety Report 5535774-X (Version None)
Quarter: 2007Q4

REPORT INFORMATION
  Report Type: 
  Country: None (occurrence: None)
  Receive Date: 20071204
  Receipt Date: 20071120
  Transmission Date: 20080405
  Serious: Yes (Death)
  Sender: FDA-Public Use
  Company Number: CERZ-11997

PATIENT
  Age: 54 Year
  Sex: Female
  Weight: 90.5 kg

DRUGS (1)
  1. CEREZYME [Suspect]
     Indication: GAUCHER'S DISEASE
     Dates: start: 19970616, end: 20070104

REACTIONS (1)
  - LIVING IN RESIDENTIAL INSTITUTION [None]
